FAERS Safety Report 14770340 (Version 1)
Quarter: 2018Q2

REPORT INFORMATION
  Report Type: Spontaneous
  Country: US (occurrence: US)
  Receive Date: 20180417
  Receipt Date: 20180417
  Transmission Date: 20180711
  Serious: No
  Sender: FDA-Public Use
  Company Number: US-PFIZER INC-2018152978

PATIENT
  Age: 53 Year
  Sex: Female

DRUGS (1)
  1. DESVENLAFAXINE SUCCINATE MONOHYDRATE [Suspect]
     Active Substance: DESVENLAFAXINE SUCCINATE
     Dosage: UNK

REACTIONS (6)
  - Drug intolerance [Unknown]
  - Fatigue [Unknown]
  - Insomnia [Unknown]
  - Hypersensitivity [Unknown]
  - Agitation [Unknown]
  - Nausea [Unknown]
